FAERS Safety Report 5274318-7 (Version None)
Quarter: 2007Q1

REPORT INFORMATION
  Report Type: 
  Country: None (occurrence: None)
  Receive Date: 20070323
  Receipt Date: 20070313
  Transmission Date: 20070707
  Serious: Yes (Other)
  Sender: FDA-Public Use
  Company Number: GB-AMGEN-UK207784

PATIENT
  Age: 31 Year
  Sex: Female
  Weight: 52 kg

DRUGS (12)
  1. ARANESP [Suspect]
     Indication: DIALYSIS
     Route: 040
     Dates: start: 20061026, end: 20070119
  2. OMEPRAZOLE [Concomitant]
     Route: 048
     Dates: start: 20060329
  3. CALCIUM CARBONATE [Concomitant]
     Route: 048
     Dates: start: 20070115
  4. ATENOLOL [Concomitant]
     Route: 048
     Dates: start: 20050901
  5. ALLOPURINOL [Concomitant]
     Route: 048
     Dates: start: 20060930
  6. VALSARTAN [Concomitant]
     Route: 048
     Dates: start: 20040101
  7. FOLIC ACID [Concomitant]
     Route: 048
     Dates: start: 20070116
  8. CLONAZEPAM [Concomitant]
     Route: 048
     Dates: start: 20060803
  9. ALFACALCIDOL [Concomitant]
     Route: 048
     Dates: start: 20060101
  10. MOVICOL [Concomitant]
     Route: 048
     Dates: start: 20061016
  11. PREDNISOLONE [Concomitant]
     Route: 065
     Dates: start: 20060803, end: 20060804
  12. PALFIUM [Concomitant]
     Route: 048
     Dates: start: 20050913

REACTIONS (2)
  - HAEMOGLOBIN DECREASED [None]
  - THERAPEUTIC RESPONSE DECREASED [None]
